FAERS Safety Report 10470136 (Version 5)
Quarter: 2015Q3

REPORT INFORMATION
  Report Type: Spontaneous
  Country: US (occurrence: US)
  Receive Date: 20140923
  Receipt Date: 20150825
  Transmission Date: 20151125
  Serious: No
  Sender: FDA-Public Use
  Company Number: US-PFIZER INC-2014260326

PATIENT
  Age: 33 Year
  Sex: Female
  Weight: 61.22 kg

DRUGS (32)
  1. SUTENT [Suspect]
     Active Substance: SUNITINIB MALATE
     Dosage: 50 MG, (CAP PO DAILY FOR 2 WKS, THEN TAKE 1 WK OFF)
     Route: 048
     Dates: start: 20150311
  2. FUCOIDAN [Concomitant]
     Dosage: UNK
  3. SUTENT [Suspect]
     Active Substance: SUNITINIB MALATE
     Dosage: 50 MG, (1 CAP PO DAILY FOR 2 WKS,THEN TAKE 1 WK OFF)
     Route: 048
     Dates: start: 20150121
  4. SUTENT [Suspect]
     Active Substance: SUNITINIB MALATE
     Dosage: 50 MG, DAILY
     Dates: start: 20150117
  5. VITAMIN B12 [Concomitant]
     Active Substance: CYANOCOBALAMIN
     Dosage: 6 MG, 1X/DAY
     Route: 048
     Dates: start: 20150107
  6. FOLIC ACID. [Concomitant]
     Active Substance: FOLIC ACID
     Dosage: 0.4 MG, 1X/DAY
     Route: 048
     Dates: start: 20150311
  7. VITAMIN B6 [Concomitant]
     Active Substance: PYRIDOXINE HYDROCHLORIDE
     Dosage: 50 MG, 1X/DAY
     Route: 048
     Dates: start: 20150107
  8. VITAMIN B6 [Concomitant]
     Active Substance: PYRIDOXINE HYDROCHLORIDE
     Dosage: 50 MG, 1X/DAY
     Route: 048
     Dates: start: 20150121
  9. NUVARING [Concomitant]
     Active Substance: ETHINYL ESTRADIOL\ETONOGESTREL
     Dosage: 0.12-0.015 MG (TAKE 1 VAGINAL RING PER VAGINA)
     Route: 067
     Dates: start: 20150311
  10. NUVARING [Concomitant]
     Active Substance: ETHINYL ESTRADIOL\ETONOGESTREL
     Dosage: 0.12-0.015 MG (TAKE 1 VAGINAL RING PER VAGINA)
     Route: 067
     Dates: start: 20150330
  11. LEVOTHYROXINE SODIUM. [Concomitant]
     Active Substance: LEVOTHYROXINE SODIUM
     Dosage: 50 ?G, 1X/DAY
     Route: 048
     Dates: start: 20150311
  12. VITAMIN B12 [Concomitant]
     Active Substance: CYANOCOBALAMIN
     Dosage: 6 MG, 1X/DAY
     Route: 048
     Dates: start: 20150311
  13. VITAMIN B12 [Concomitant]
     Active Substance: CYANOCOBALAMIN
     Dosage: 6 MG, 1X/DAY
     Route: 048
     Dates: start: 20150330
  14. SUTENT [Suspect]
     Active Substance: SUNITINIB MALATE
     Dosage: 50 MG (CAP PO DAILY FOR 2 WKS, THEN TAKE 1 WK OFF)
     Route: 048
     Dates: start: 20150511
  15. SUTENT [Suspect]
     Active Substance: SUNITINIB MALATE
     Dosage: 50 MG, (1 CAP PO DAILY FOR 2 WKS, THEN TAKE 1 WK OFF)
     Route: 048
     Dates: start: 20150107
  16. SUTENT [Suspect]
     Active Substance: SUNITINIB MALATE
     Dosage: 50 MG (1 CAP PO DAILY FOR 2 WKS, THEN TAKE 1 WK OFF)
     Route: 048
     Dates: start: 20150330
  17. FOLIC ACID. [Concomitant]
     Active Substance: FOLIC ACID
     Dosage: 0.4 MG, 1X/DAY
     Route: 048
     Dates: start: 20150107
  18. FOLIC ACID. [Concomitant]
     Active Substance: FOLIC ACID
     Dosage: 0.4 MG, 1X/DAY
     Route: 048
     Dates: start: 20150121
  19. ZYRTEC [Concomitant]
     Active Substance: CETIRIZINE HYDROCHLORIDE
     Dosage: UNK, PRN
  20. SUTENT [Suspect]
     Active Substance: SUNITINIB MALATE
     Indication: RENAL CELL CARCINOMA
     Dosage: 50 MG, CYCLIC (DAILY FOR 28 DAYS ON AND THEN 14 DAY BREAK)
     Route: 048
     Dates: start: 201409
  21. SUTENT [Suspect]
     Active Substance: SUNITINIB MALATE
     Dosage: 50 MG, CYCLIC (X 2 WEEKS/1 WEEK OFF CYCLE)
  22. SUTENT [Suspect]
     Active Substance: SUNITINIB MALATE
     Dosage: 50 MG, (1 CAP PO DAILY FOR 2 WKS, THEN TAKE 1 WK OFF)
     Route: 048
     Dates: start: 20150313
  23. VITAMIN B12 [Concomitant]
     Active Substance: CYANOCOBALAMIN
     Dosage: 6 MG, 1X/DAY
     Route: 048
     Dates: start: 20150121
  24. VITAMIN B12 [Concomitant]
     Active Substance: CYANOCOBALAMIN
     Dosage: 6 MG, 1X/DAY
     Route: 048
     Dates: start: 20150511
  25. FOLIC ACID. [Concomitant]
     Active Substance: FOLIC ACID
     Dosage: 0.4 MG, 1X/DAY
     Route: 048
     Dates: start: 20150511
  26. VITAMIN B6 [Concomitant]
     Active Substance: PYRIDOXINE HYDROCHLORIDE
     Dosage: 50 MG, 1X/DAY
     Route: 048
     Dates: start: 20150511
  27. FOLIC ACID. [Concomitant]
     Active Substance: FOLIC ACID
     Dosage: 0.4 MG, 1X/DAY
     Route: 048
     Dates: start: 20150330
  28. VITAMIN B6 [Concomitant]
     Active Substance: PYRIDOXINE HYDROCHLORIDE
     Dosage: 50 MG, 1X/DAY
     Route: 048
     Dates: start: 20150311
  29. VITAMIN B6 [Concomitant]
     Active Substance: PYRIDOXINE HYDROCHLORIDE
     Dosage: 50 MG, 1X/DAY
     Route: 048
     Dates: start: 20150330
  30. NUVARING [Concomitant]
     Active Substance: ETHINYL ESTRADIOL\ETONOGESTREL
     Dosage: 0.12-0.015 MG (TAKE 1 VAGINAL RING PER VAGINA)
     Route: 067
     Dates: start: 20150511
  31. LEVOTHYROXINE SODIUM. [Concomitant]
     Active Substance: LEVOTHYROXINE SODIUM
     Dosage: 50 ?G, 1X/DAY
     Route: 048
     Dates: start: 20150330
  32. LEVOTHYROXINE SODIUM. [Concomitant]
     Active Substance: LEVOTHYROXINE SODIUM
     Dosage: 50 ?G, 1X/DAY
     Route: 048
     Dates: start: 20150511

REACTIONS (10)
  - Blister [Unknown]
  - Pain in extremity [Unknown]
  - Glossodynia [Unknown]
  - Acne [Unknown]
  - Yellow skin [Unknown]
  - Mucosal inflammation [Not Recovered/Not Resolved]
  - Blood bilirubin increased [Not Recovered/Not Resolved]
  - Palmar-plantar erythrodysaesthesia syndrome [Not Recovered/Not Resolved]
  - Diarrhoea [Not Recovered/Not Resolved]
  - Eye colour change [Unknown]

NARRATIVE: CASE EVENT DATE: 2014
